FAERS Safety Report 7439562-9 (Version None)
Quarter: 2011Q2

REPORT INFORMATION
  Report Type: 
  Country: None (occurrence: None)
  Receive Date: 20110427
  Receipt Date: 20110426
  Transmission Date: 20111010
  Serious: Yes (Other)
  Sender: FDA-Public Use
  Company Number: SK-PFIZER INC-2011089499

PATIENT
  Sex: Female

DRUGS (2)
  1. XALATAN [Suspect]
     Indication: GLAUCOMA
     Dosage: UNK
  2. BRIMONAL [Suspect]
     Indication: GLAUCOMA
     Dosage: UNK

REACTIONS (3)
  - TRABECULOPLASTY [None]
  - CARDIOVASCULAR DISORDER [None]
  - INTRAOCULAR PRESSURE INCREASED [None]
